FAERS Safety Report 16333427 (Version 4)
Quarter: 2022Q1

REPORT INFORMATION
  Report Type: Spontaneous
  Country: US (occurrence: US)
  Receive Date: 20190520
  Receipt Date: 20220110
  Transmission Date: 20220423
  Serious: Yes (Hospitalization, Other)
  Sender: FDA-Public Use
  Company Number: US-GILEAD-2019-0407758

PATIENT
  Age: 33 Year
  Sex: Male
  Weight: 86.168 kg

DRUGS (38)
  1. ATRIPLA [Suspect]
     Active Substance: EFAVIRENZ\EMTRICITABINE\TENOFOVIR DISOPROXIL FUMARATE
     Indication: HIV infection
     Dosage: UNK
     Route: 048
     Dates: start: 2006, end: 2017
  2. ATRIPLA [Suspect]
     Active Substance: EFAVIRENZ\EMTRICITABINE\TENOFOVIR DISOPROXIL FUMARATE
     Dosage: UNK
     Route: 048
     Dates: start: 2006, end: 2009
  3. TRUVADA [Suspect]
     Active Substance: EMTRICITABINE\TENOFOVIR DISOPROXIL FUMARATE
     Indication: HIV infection
     Dosage: UNK
     Route: 048
     Dates: start: 2006, end: 2013
  4. TRUVADA [Suspect]
     Active Substance: EMTRICITABINE\TENOFOVIR DISOPROXIL FUMARATE
     Dosage: UNK
     Route: 048
     Dates: start: 2006, end: 2010
  5. STRIBILD [Suspect]
     Active Substance: COBICISTAT\ELVITEGRAVIR\EMTRICITABINE\TENOFOVIR DISOPROXIL FUMARATE
     Indication: HIV infection
     Dosage: UNK
     Route: 048
     Dates: start: 2006, end: 2017
  6. ISENTRESS [Concomitant]
     Active Substance: RALTEGRAVIR POTASSIUM
  7. NORVIR [Concomitant]
     Active Substance: RITONAVIR
  8. PREZCOBIX [Concomitant]
     Active Substance: COBICISTAT\DARUNAVIR ETHANOLATE
  9. PREZISTA [Concomitant]
     Active Substance: DARUNAVIR ETHANOLATE
  10. SYMTUZA [Concomitant]
     Active Substance: COBICISTAT\DARUNAVIR\EMTRICITABINE\TENOFOVIR ALAFENAMIDE
  11. TIVICAY [Concomitant]
     Active Substance: DOLUTEGRAVIR SODIUM
  12. FOLIC ACID [Concomitant]
     Active Substance: FOLIC ACID
  13. CALCITRIOL [Concomitant]
     Active Substance: CALCITRIOL
  14. CALCIUM [Concomitant]
     Active Substance: CALCIUM
  15. BUPROPION [Concomitant]
     Active Substance: BUPROPION
  16. NASCOBAL [Concomitant]
     Active Substance: CYANOCOBALAMIN
  17. OMEPRAZOLE [Concomitant]
     Active Substance: OMEPRAZOLE
  18. MIRTAZAPINE [Concomitant]
     Active Substance: MIRTAZAPINE
  19. FERROUS SULFATE [Concomitant]
     Active Substance: FERROUS SULFATE
  20. LISINOPRIL [Concomitant]
     Active Substance: LISINOPRIL
  21. TAB A VITE [Concomitant]
  22. NICOTINE [Concomitant]
     Active Substance: NICOTINE
  23. SILDENAFIL [Concomitant]
     Active Substance: SILDENAFIL
  24. AZITHROMYCIN [Concomitant]
     Active Substance: AZITHROMYCIN
  25. FLUCONAZOLE [Concomitant]
     Active Substance: FLUCONAZOLE
  26. TIMOLOL [Concomitant]
     Active Substance: TIMOLOL
  27. HYDROCORTISONE [Concomitant]
     Active Substance: HYDROCORTISONE
  28. ALDARA [Concomitant]
     Active Substance: IMIQUIMOD
  29. CITALOPRAM [Concomitant]
     Active Substance: CITALOPRAM HYDROBROMIDE
  30. DAPSONE [Concomitant]
     Active Substance: DAPSONE
  31. ETHAMBUTOL [Concomitant]
     Active Substance: ETHAMBUTOL HYDROCHLORIDE
  32. RIFABUTIN [Concomitant]
     Active Substance: RIFABUTIN
  33. RITONAVIR [Concomitant]
     Active Substance: RITONAVIR
  34. RALTEGRAVIR [Concomitant]
     Active Substance: RALTEGRAVIR
  35. DARUNAVIR [Concomitant]
     Active Substance: DARUNAVIR
  36. TRAZODONE [Concomitant]
     Active Substance: TRAZODONE HYDROCHLORIDE
  37. CYCLOBENZAPRINE [Concomitant]
     Active Substance: CYCLOBENZAPRINE
  38. VITAMINS [Concomitant]
     Active Substance: VITAMINS

REACTIONS (11)
  - Chronic kidney disease [Not Recovered/Not Resolved]
  - Fatigue [Unknown]
  - Acute kidney injury [Not Recovered/Not Resolved]
  - Renal failure [Not Recovered/Not Resolved]
  - Emotional distress [Not Recovered/Not Resolved]
  - Economic problem [Not Recovered/Not Resolved]
  - General physical health deterioration [Not Recovered/Not Resolved]
  - Quality of life decreased [Not Recovered/Not Resolved]
  - Anhedonia [Not Recovered/Not Resolved]
  - Anxiety [Not Recovered/Not Resolved]
  - Pain [Not Recovered/Not Resolved]

NARRATIVE: CASE EVENT DATE: 20060806
